FAERS Safety Report 12792238 (Version 2)
Quarter: 2017Q2

REPORT INFORMATION
  Report Type: Spontaneous
  Country: US (occurrence: US)
  Receive Date: 20160929
  Receipt Date: 20170406
  Transmission Date: 20170830
  Serious: No
  Sender: FDA-Public Use
  Company Number: US-JNJFOC-20160918099

PATIENT
  Age: 12 Year
  Sex: Male

DRUGS (6)
  1. RISPERDAL [Suspect]
     Active Substance: RISPERIDONE
     Indication: AGGRESSION
     Dosage: 0.25 MG AND 0.5 MG
     Route: 048
     Dates: start: 200312, end: 200403
  2. RISPERDAL [Suspect]
     Active Substance: RISPERIDONE
     Indication: ABNORMAL BEHAVIOUR
     Route: 048
     Dates: start: 200404, end: 200802
  3. RISPERDAL [Suspect]
     Active Substance: RISPERIDONE
     Indication: AGITATION
     Route: 048
     Dates: start: 200404, end: 200802
  4. RISPERDAL [Suspect]
     Active Substance: RISPERIDONE
     Indication: AGITATION
     Dosage: 0.25 MG AND 0.5 MG
     Route: 048
     Dates: start: 200312, end: 200403
  5. RISPERDAL [Suspect]
     Active Substance: RISPERIDONE
     Indication: ABNORMAL BEHAVIOUR
     Dosage: 0.25 MG AND 0.5 MG
     Route: 048
     Dates: start: 200312, end: 200403
  6. RISPERDAL [Suspect]
     Active Substance: RISPERIDONE
     Indication: AGGRESSION
     Route: 048
     Dates: start: 200404, end: 200802

REACTIONS (5)
  - Increased appetite [Unknown]
  - Sedation [Unknown]
  - Obesity [Unknown]
  - Gynaecomastia [Unknown]
  - Sleep disorder [Unknown]

NARRATIVE: CASE EVENT DATE: 200301
